FAERS Safety Report 16766848 (Version 1)
Quarter: 2019Q4

REPORT INFORMATION
  Report Type: Spontaneous
  Country: US (occurrence: US)
  Receive Date: 20190901
  Receipt Date: 20190901
  Transmission Date: 20200122
  Serious: Yes (Death, Hospitalization)
  Sender: FDA-Public Use
  Company Number: None

PATIENT
  Age: 49 Year
  Sex: Female
  Weight: 128.25 kg

DRUGS (1)
  1. SORAFENIB [Suspect]
     Active Substance: SORAFENIB
     Indication: HEPATIC CANCER STAGE IV
     Route: 048
     Dates: start: 20180510, end: 20180910

REACTIONS (7)
  - Decreased appetite [None]
  - Fatigue [None]
  - Dysphonia [None]
  - Vomiting [None]
  - Dyspnoea [None]
  - Mental status changes [None]
  - Asthenia [None]

NARRATIVE: CASE EVENT DATE: 20180522
